FAERS Safety Report 17306456 (Version 1)
Quarter: 2020Q1

REPORT INFORMATION
  Report Type: Report from Study
  Country: US (occurrence: US)
  Receive Date: 20200123
  Receipt Date: 20200123
  Transmission Date: 20200409
  Serious: Yes (Death, Other)
  Sender: FDA-Public Use
  Company Number: US-BAUSCH-BL-2020-001698

PATIENT
  Age: 74 Year
  Sex: Male

DRUGS (1)
  1. XIFAXAN [Suspect]
     Active Substance: RIFAXIMIN
     Indication: PRODUCT USED FOR UNKNOWN INDICATION
     Dosage: START DATE: ABOUT 2 YEARS AGO
     Route: 048

REACTIONS (2)
  - Death [Fatal]
  - Hepatic failure [Unknown]

NARRATIVE: CASE EVENT DATE: 20200114
